FAERS Safety Report 8127280-3 (Version None)
Quarter: 2012Q1

REPORT INFORMATION
  Report Type: 
  Country: None (occurrence: None)
  Receive Date: 20120210
  Receipt Date: 20120127
  Transmission Date: 20120608
  Serious: Yes (Other)
  Sender: FDA-Public Use
  Company Number: GB-UCBSA-050437

PATIENT
  Age: 61 Year
  Sex: Female
  Weight: 48 kg

DRUGS (4)
  1. STEROIDS [Concomitant]
     Indication: RHEUMATOID ARTHRITIS
     Dosage: UNKNOWN DOSE
  2. CERTOLIZUMAB [Suspect]
     Indication: RHEUMATOID ARTHRITIS
     Route: 058
     Dates: start: 20110331
  3. METHOTREXATE [Concomitant]
     Indication: RHEUMATOID ARTHRITIS
     Dosage: UNKNOWN DOSE
  4. FLUCLOXACILLIN [Concomitant]
     Dosage: PRESCRIBED DURING TEN DAYS FOLLOWING PLANNED SYNOVECTOMY
     Dates: start: 20110801, end: 20110801

REACTIONS (2)
  - PROCEDURAL PAIN [None]
  - STITCH ABSCESS [None]
